FAERS Safety Report 10427383 (Version 1)
Quarter: 2014Q3

REPORT INFORMATION
  Report Type: Spontaneous
  Country: TW (occurrence: TW)
  Receive Date: 20140903
  Receipt Date: 20140903
  Transmission Date: 20150326
  Serious: Yes (Other)
  Sender: FDA-Public Use
  Company Number: TW-BAYER-2014-128124

PATIENT
  Age: 67 Year
  Sex: Female

DRUGS (1)
  1. ULTRAVIST [Suspect]
     Active Substance: IOPROMIDE
     Dosage: UNK, ONCE
     Dates: start: 20140818, end: 20140818

REACTIONS (1)
  - Vital functions abnormal [None]

NARRATIVE: CASE EVENT DATE: 20140818
